FAERS Safety Report 4273937-4 (Version None)
Quarter: 2004Q1

REPORT INFORMATION
  Report Type: 
  Country: None (occurrence: None)
  Receive Date: 20040115
  Receipt Date: 20031230
  Transmission Date: 20041129
  Serious: Yes (Hospitalization)
  Sender: FDA-Public Use
  Company Number: US_040199682

PATIENT
  Age: 70 Year
  Sex: Male
  Weight: 120 kg

DRUGS (3)
  1. HUMALOG [Suspect]
     Indication: DIABETES MELLITUS
     Dosage: 24 U/DAY
  2. ACTOS [Concomitant]
  3. LANTUS [Concomitant]

REACTIONS (10)
  - ASTHENIA [None]
  - BLOOD GLUCOSE DECREASED [None]
  - BLOOD SODIUM DECREASED [None]
  - CARDIAC FAILURE CONGESTIVE [None]
  - CIRCULATORY COLLAPSE [None]
  - FEELING ABNORMAL [None]
  - FLUID RETENTION [None]
  - MEDICATION ERROR [None]
  - TOOTH ABSCESS [None]
  - WEIGHT INCREASED [None]
